FAERS Safety Report 8876580 (Version 1)
Quarter: 2012Q4

REPORT INFORMATION
  Report Type: 
  Country: US (occurrence: US)
  Receive Date: 20121023
  Receipt Date: 20121023
  Transmission Date: 20130627
  Serious: Yes (Life-Threatening)
  Sender: FDA-Public Use
  Company Number: US-ASTELLAS-2012US006783

PATIENT
  Sex: Female

DRUGS (1)
  1. PROGRAF [Suspect]
     Indication: HEART TRANSPLANT
     Dosage: 2 mg daily in the morning and 1.5 mg daily in the afternoon
     Route: 048
     Dates: start: 20090929

REACTIONS (2)
  - Drug ineffective [Unknown]
  - Heart transplant rejection [Recovered/Resolved]
